FAERS Safety Report 17289336 (Version 1)
Quarter: 2020Q1

REPORT INFORMATION
  Report Type: Spontaneous
  Country: CN (occurrence: CN)
  Receive Date: 20200120
  Receipt Date: 20200120
  Transmission Date: 20200409
  Serious: Yes (Hospitalization)
  Sender: FDA-Public Use
  Company Number: CN-PFIZER INC-2020025461

PATIENT
  Age: 57 Year
  Sex: Female
  Weight: 50 kg

DRUGS (5)
  1. IBRANCE [Suspect]
     Active Substance: PALBOCICLIB
     Dosage: 100 MG, 1X/DAY D1-21, 7 DAYS OFF, 28 DAYS IN ONE CYCLE
     Route: 048
     Dates: start: 20191012, end: 20191101
  2. IBRANCE [Suspect]
     Active Substance: PALBOCICLIB
     Dosage: 125 MG, 1X/DAY D1-21, 7 DAYS OFF, 28 DAYS IN ONE CYCLE
     Route: 048
     Dates: start: 20191213, end: 20191231
  3. IBRANCE [Suspect]
     Active Substance: PALBOCICLIB
     Dosage: 100 MG, 1X/DAY D1-21, 7 DAYS OFF, 28 DAYS IN ONE CYCLE
     Route: 048
     Dates: start: 20190914, end: 20191004
  4. IBRANCE [Suspect]
     Active Substance: PALBOCICLIB
     Dosage: 100 MG, 1X/DAY D1-21, 7 DAYS OFF, 28 DAYS IN ONE CYCLE
     Route: 048
     Dates: start: 20191115, end: 20191206
  5. IBRANCE [Suspect]
     Active Substance: PALBOCICLIB
     Indication: BREAST CANCER STAGE IV
     Dosage: 125 MG, 1X/DAY D1-21, 7 DAYS OFF, 28 DAYS IN ONE CYCLE
     Route: 048
     Dates: start: 20190817, end: 20190906

REACTIONS (3)
  - Platelet count decreased [Recovering/Resolving]
  - White blood cell count decreased [Recovering/Resolving]
  - Granulocyte count decreased [Recovering/Resolving]

NARRATIVE: CASE EVENT DATE: 20191231
